FAERS Safety Report 9007311 (Version 3)
Quarter: 2013Q2

REPORT INFORMATION
  Report Type: Report from Study
  Country: ES (occurrence: ES)
  Receive Date: 20130110
  Receipt Date: 20130521
  Transmission Date: 20140414
  Serious: Yes (Death, Life-Threatening, Hospitalization, Other)
  Sender: FDA-Public Use
  Company Number: ES-TEVA-379593USA

PATIENT
  Age: 55 Year
  Sex: Female

DRUGS (9)
  1. TREANDA [Suspect]
     Indication: PLASMA CELL MYELOMA
     Route: 042
     Dates: start: 20121015, end: 20121111
  2. VELCADE [Suspect]
     Indication: PLASMA CELL MYELOMA
     Dosage: UNKNOWN/D
     Route: 058
     Dates: start: 20121015, end: 20121111
  3. DEXAMETHASONE [Suspect]
     Indication: PLASMA CELL MYELOMA
     Dates: start: 20121015, end: 20121111
  4. ACICLOVIR [Concomitant]
     Dates: start: 20121016
  5. EPOETIN ALFA [Concomitant]
     Dates: start: 20121101
  6. LEVOFLOXACIN [Concomitant]
     Dates: start: 20121116
  7. MEROPENEM [Concomitant]
     Dates: start: 20121119
  8. PIPERACILLIN SODIUM W/TAZOBACTAM [Concomitant]
     Dates: start: 20121118
  9. AMIKACIN [Concomitant]
     Dates: start: 20121119

REACTIONS (4)
  - Supraventricular tachycardia [Recovered/Resolved]
  - Nausea [Not Recovered/Not Resolved]
  - Vomiting [Not Recovered/Not Resolved]
  - Plasma cell myeloma [Fatal]
